FAERS Safety Report 7149752-0 (Version None)
Quarter: 2010Q4

REPORT INFORMATION
  Report Type: 
  Country: None (occurrence: None)
  Receive Date: 20101210
  Receipt Date: 20101201
  Transmission Date: 20110411
  Serious: Yes (Hospitalization)
  Sender: FDA-Public Use
  Company Number: US-BIOGENIDEC-2010BI042591

PATIENT
  Age: 48 Year
  Sex: Female
  Weight: 93 kg

DRUGS (2)
  1. AVONEX [Suspect]
     Indication: MULTIPLE SCLEROSIS
     Route: 030
     Dates: start: 20030101, end: 20100906
  2. AVONEX [Suspect]
     Route: 030
     Dates: start: 20011001, end: 20030101

REACTIONS (10)
  - DEHYDRATION [None]
  - DIZZINESS [None]
  - IMPAIRED HEALING [None]
  - MULTIPLE SCLEROSIS RELAPSE [None]
  - PERONEAL NERVE PALSY [None]
  - RASH [None]
  - RENAL IMPAIRMENT [None]
  - VERTIGO [None]
  - VOMITING [None]
  - WOUND INFECTION STAPHYLOCOCCAL [None]
